FAERS Safety Report 21771019 (Version 1)
Quarter: 2022Q4

REPORT INFORMATION
  Report Type: Spontaneous
  Country: FR (occurrence: FR)
  Receive Date: 20221223
  Receipt Date: 20221223
  Transmission Date: 20230113
  Serious: Yes (Other)
  Sender: FDA-Public Use
  Company Number: FR-ABBVIE-4240661

PATIENT
  Age: 54 Year
  Sex: Male
  Weight: 71 kg

DRUGS (17)
  1. HUMIRA [Suspect]
     Active Substance: ADALIMUMAB
     Indication: Psoriatic arthropathy
     Route: 058
     Dates: start: 2016
  2. HUMIRA [Suspect]
     Active Substance: ADALIMUMAB
     Indication: Ankylosing spondylitis
     Route: 058
     Dates: start: 2013, end: 2016
  3. HUMIRA [Suspect]
     Active Substance: ADALIMUMAB
     Route: 058
     Dates: end: 20200415
  4. TRAMADOL HYDROCHLORIDE [Concomitant]
     Active Substance: TRAMADOL HYDROCHLORIDE
     Indication: Psoriatic arthropathy
     Dosage: MORNING AND EVENING
     Dates: start: 2015, end: 2018
  5. TRAMADOL HYDROCHLORIDE [Concomitant]
     Active Substance: TRAMADOL HYDROCHLORIDE
     Indication: Psoriatic arthropathy
     Dosage: MORNING AND EVENING
     Dates: end: 2015
  6. INDOMETHACIN [Concomitant]
     Active Substance: INDOMETHACIN
     Indication: Psoriatic arthropathy
     Dosage: HALVED DOSAGE
     Dates: start: 2015, end: 2017
  7. INDOMETHACIN [Concomitant]
     Active Substance: INDOMETHACIN
     Indication: Psoriatic arthropathy
     Dosage: AS NEEDED
  8. INDOMETHACIN [Concomitant]
     Active Substance: INDOMETHACIN
     Indication: Psoriatic arthropathy
     Dates: start: 2017, end: 2018
  9. INDOMETHACIN [Concomitant]
     Active Substance: INDOMETHACIN
     Indication: Psoriatic arthropathy
     Dosage: AS NEEDED
  10. INDOMETHACIN [Concomitant]
     Active Substance: INDOMETHACIN
     Indication: Psoriatic arthropathy
     Dates: end: 2015
  11. THIOCOLCHICOSIDE [Concomitant]
     Active Substance: THIOCOLCHICOSIDE
     Indication: Product used for unknown indication
     Dates: end: 20160811
  12. THIOCOLCHICOSIDE [Concomitant]
     Active Substance: THIOCOLCHICOSIDE
     Indication: Product used for unknown indication
  13. TRAMADOL [Concomitant]
     Active Substance: TRAMADOL
     Indication: Product used for unknown indication
     Dosage: FORM STRENGTH: 50 MG?AS NEEDED
     Dates: end: 2017
  14. TRAMADOL [Concomitant]
     Active Substance: TRAMADOL
     Indication: Product used for unknown indication
     Dosage: FORM STRENGTH: 100 MG?AS NEEDED
     Dates: start: 2017
  15. Prevenar vaccine [Concomitant]
     Indication: Prophylaxis
     Dates: start: 201805, end: 201805
  16. IRBESARTAN [Concomitant]
     Active Substance: IRBESARTAN
     Indication: Blood pressure management
     Dates: end: 2018
  17. PNEUMOVAX NOS [Concomitant]
     Active Substance: PNEUMOCOCCAL VACCINE POLYVALENT
     Indication: Prophylaxis
     Dates: start: 201807, end: 201807

REACTIONS (19)
  - Breast cancer metastatic [Not Recovered/Not Resolved]
  - Lymphoedema [Unknown]
  - Liver function test abnormal [Unknown]
  - Breast cancer metastatic [Unknown]
  - Oedema peripheral [Unknown]
  - Psoriatic arthropathy [Unknown]
  - Therapeutic product effect incomplete [Unknown]
  - Synovitis [Unknown]
  - Pain in extremity [Unknown]
  - Condition aggravated [Unknown]
  - Peripheral venous disease [Unknown]
  - Pain in extremity [Unknown]
  - Psoriasis [Unknown]
  - Back pain [Unknown]
  - Pain [Unknown]
  - Lymphadenopathy mediastinal [Unknown]
  - Musculoskeletal stiffness [Unknown]
  - Headache [Unknown]
  - Dermal cyst [Unknown]

NARRATIVE: CASE EVENT DATE: 20150101
